FAERS Safety Report 25575768 (Version 2)
Quarter: 2025Q3

REPORT INFORMATION
  Report Type: Spontaneous
  Country: JP (occurrence: JP)
  Receive Date: 20250718
  Receipt Date: 20250910
  Transmission Date: 20251020
  Serious: Yes (Hospitalization)
  Sender: ROCHE
  Company Number: JP-CHUGAI-2025022612

PATIENT
  Age: 78 Year
  Sex: Female

DRUGS (2)
  1. PHESGO [Suspect]
     Active Substance: HYALURONIDASE-ZZXF\PERTUZUMAB\TRASTUZUMAB
     Indication: Breast cancer
     Route: 058
  2. UFT [Suspect]
     Active Substance: TEGAFUR\URACIL
     Indication: Product used for unknown indication
     Route: 048

REACTIONS (1)
  - Infusion related reaction [Recovering/Resolving]
